FAERS Safety Report 4580028-1 (Version None)
Quarter: 2005Q1

REPORT INFORMATION
  Report Type: 
  Country: None (occurrence: None)
  Receive Date: 20050210
  Receipt Date: 20050128
  Transmission Date: 20050727
  Serious: Yes (Hospitalization)
  Sender: FDA-Public Use
  Company Number: GXKR2005CZ00555

PATIENT
  Age: 76 Year
  Sex: Male

DRUGS (6)
  1. AMOKSIKLAV (NGX) (AMOXICILLIN, CLAVULANATE) TABLET, 1G [Suspect]
     Indication: EAR INFECTION
     Dosage: 1 G, BID, ORAL
     Route: 048
     Dates: start: 20041202, end: 20041209
  2. VESSEL DUE F (SULODEXIDE) [Concomitant]
  3. TRENTAL [Concomitant]
  4. AGEN (AMLODIPINE BESILATE) [Concomitant]
  5. TENOLOC (CELIPROLOL HYDROCHLORIDE) [Concomitant]
  6. SECATOXIN (DIHYROERGOTOXINE MESILATE) [Concomitant]

REACTIONS (3)
  - EXANTHEM [None]
  - PURPURA [None]
  - RASH [None]
